FAERS Safety Report 5092095-X (Version None)
Quarter: 2006Q3

REPORT INFORMATION
  Report Type: 
  Country: None (occurrence: None)
  Receive Date: 20060829
  Receipt Date: 20060616
  Transmission Date: 20061208
  Serious: Yes (Death)
  Sender: FDA-Public Use
  Company Number: NZ-BOEHRINGER INGELHEIM PHARMACEUTICALS, INC.-2006-BP-06844AU

PATIENT
  Sex: Male

DRUGS (1)
  1. SIFROL [Suspect]
     Dates: start: 20000701

REACTIONS (1)
  - DEATH [None]
